FAERS Safety Report 7955026-8 (Version None)
Quarter: 2011Q4

REPORT INFORMATION
  Report Type: 
  Country: None (occurrence: None)
  Receive Date: 20111202
  Receipt Date: 20111122
  Transmission Date: 20120403
  Serious: Yes (Other)
  Sender: FDA-Public Use
  Company Number: CA-ABBOTT-11P-028-0877115-00

PATIENT
  Sex: Male

DRUGS (6)
  1. COMMERCIAL HUMIRA [Concomitant]
     Indication: CROHN'S DISEASE
     Route: 058
     Dates: start: 20081010
  2. ACETAMINOPHEN [Concomitant]
     Indication: ABDOMINAL PAIN
     Dates: start: 20110301
  3. MITOMYCIN [Concomitant]
     Indication: BLADDER CANCER
     Dates: start: 20110822
  4. PURINETHOL [Concomitant]
     Indication: CROHN'S DISEASE
     Dates: start: 20080801, end: 20090331
  5. IMODIUM [Concomitant]
     Indication: DIARRHOEA
     Dosage: 2 TABLESPOON
     Dates: start: 20110903
  6. HUMIRA [Suspect]
     Indication: CROHN'S DISEASE
     Route: 058
     Dates: start: 20090601, end: 20110430

REACTIONS (1)
  - BLADDER CANCER [None]
